FAERS Safety Report 9201106 (Version 3)
Quarter: 2013Q2

REPORT INFORMATION
  Report Type: Spontaneous
  Country: US (occurrence: US)
  Receive Date: 20130401
  Receipt Date: 20130621
  Transmission Date: 20140414
  Serious: No
  Sender: FDA-Public Use
  Company Number: US-BAYER-2013-037318

PATIENT
  Age: 36 Year
  Sex: Female

DRUGS (1)
  1. MIRENA [Suspect]
     Indication: CONTRACEPTION
     Dosage: 20 MCG/24HR, CONT
     Route: 015
     Dates: start: 201202, end: 20130417

REACTIONS (7)
  - Weight increased [None]
  - Fatigue [None]
  - Abdominal pain lower [None]
  - Back pain [None]
  - Ovarian cyst [None]
  - Mood altered [None]
  - Headache [None]
